FAERS Safety Report 22064665 (Version 2)
Quarter: 2023Q2

REPORT INFORMATION
  Report Type: Spontaneous
  Country: JP (occurrence: JP)
  Receive Date: 20230306
  Receipt Date: 20230403
  Transmission Date: 20230722
  Serious: Yes (Death, Hospitalization, Other)
  Sender: FDA-Public Use
  Company Number: JP-CHUGAI-2022045089

PATIENT
  Age: 76 Year
  Sex: Female

DRUGS (6)
  1. TECENTRIQ [Suspect]
     Active Substance: ATEZOLIZUMAB
     Indication: Hepatocellular carcinoma
     Dosage: UNK, ONCE/3WEEKS
     Route: 041
     Dates: start: 20220405, end: 20220428
  2. TECENTRIQ [Suspect]
     Active Substance: ATEZOLIZUMAB
     Dosage: ONCE/3WEEKS
     Route: 041
     Dates: start: 20221004, end: 20221227
  3. TECENTRIQ [Suspect]
     Active Substance: ATEZOLIZUMAB
     Route: 041
     Dates: start: 20220218, end: 2022
  4. AVASTIN [Suspect]
     Active Substance: BEVACIZUMAB
     Indication: Hepatocellular carcinoma
     Route: 041
     Dates: start: 20220405, end: 20220428
  5. AVASTIN [Suspect]
     Active Substance: BEVACIZUMAB
     Dosage: UNK, ONCE/3WEEKS
     Route: 041
     Dates: start: 20221004, end: 20221227
  6. AVASTIN [Suspect]
     Active Substance: BEVACIZUMAB
     Route: 041
     Dates: start: 20220218, end: 2022

REACTIONS (4)
  - Diarrhoea [Recovered/Resolved]
  - Hepatic failure [Fatal]
  - Interstitial lung disease [Fatal]
  - Disease progression [Unknown]

NARRATIVE: CASE EVENT DATE: 20220428
